FAERS Safety Report 20621427 (Version 1)
Quarter: 2022Q1

REPORT INFORMATION
  Report Type: Spontaneous
  Country: US (occurrence: None)
  Receive Date: 20220322
  Receipt Date: 20220322
  Transmission Date: 20220424
  Serious: Yes (Hospitalization)
  Sender: FDA-Public Use
  Company Number: None

PATIENT
  Age: 33 Year
  Sex: Male
  Weight: 70.8 kg

DRUGS (5)
  1. PREDNISONE [Suspect]
     Active Substance: PREDNISONE
     Indication: Product used for unknown indication
     Dosage: FREQUENCY : DAILY;?
  2. HUMIRA [Suspect]
     Active Substance: ADALIMUMAB
     Indication: Product used for unknown indication
     Dosage: FREQUENCY : UNKNOWN;?
  3. APRISO [Concomitant]
     Active Substance: MESALAMINE
  4. cholecalcierol [Concomitant]
  5. aza THIUPRINE (IMURAN) [Concomitant]

REACTIONS (2)
  - Crohn^s disease [None]
  - Cytomegalovirus test positive [None]

NARRATIVE: CASE EVENT DATE: 20190723
